FAERS Safety Report 5616195-8 (Version None)
Quarter: 2008Q1

REPORT INFORMATION
  Report Type: 
  Country: None (occurrence: None)
  Receive Date: 20080206
  Receipt Date: 20080129
  Transmission Date: 20080703
  Serious: Yes (Hospitalization, Other)
  Sender: FDA-Public Use
  Company Number: US-MERCK-0706USA00956

PATIENT
  Age: 57 Year
  Sex: Female
  Weight: 77 kg

DRUGS (3)
  1. FOSAMAX [Suspect]
     Indication: OSTEOPENIA
     Route: 048
     Dates: start: 20000101
  2. LASIX [Concomitant]
     Indication: CONGENITAL CYSTIC KIDNEY DISEASE
     Route: 065
     Dates: start: 19700101
  3. SYNTHROID [Concomitant]
     Indication: THYROID DISORDER
     Route: 065

REACTIONS (24)
  - ABDOMINAL HERNIA [None]
  - ABDOMINAL PAIN [None]
  - AORTIC ANEURYSM [None]
  - AZOTAEMIA [None]
  - CEREBROVASCULAR ACCIDENT [None]
  - CHEST PAIN [None]
  - COLITIS [None]
  - CONSTIPATION [None]
  - DEEP VEIN THROMBOSIS [None]
  - DRUG HYPERSENSITIVITY [None]
  - EAR PAIN [None]
  - HYPERTENSION [None]
  - INTERVERTEBRAL DISC DEGENERATION [None]
  - INTERVERTEBRAL DISC PROTRUSION [None]
  - IODINE ALLERGY [None]
  - JAW DISORDER [None]
  - MUSCLE SPASMS [None]
  - PAIN IN JAW [None]
  - POSTOPERATIVE WOUND INFECTION [None]
  - PYELONEPHRITIS [None]
  - RENAL FAILURE ACUTE [None]
  - SLEEP APNOEA SYNDROME [None]
  - TEMPOROMANDIBULAR JOINT SYNDROME [None]
  - URTICARIA [None]
